FAERS Safety Report 5223526-X (Version None)
Quarter: 2007Q1

REPORT INFORMATION
  Report Type: 
  Country: None (occurrence: None)
  Receive Date: 20070125
  Receipt Date: 20070110
  Transmission Date: 20070707
  Serious: Yes (Hospitalization, Other)
  Sender: FDA-Public Use
  Company Number: 2007EN000002

PATIENT
  Age: 38 Year
  Sex: Female

DRUGS (1)
  1. ABELCET [Suspect]
     Indication: DRUG USE FOR UNKNOWN INDICATION
     Dosage: 270 MG;
     Dates: start: 20070105, end: 20070105

REACTIONS (6)
  - BLOOD PRESSURE INCREASED [None]
  - HYPOTHERMIA [None]
  - PYREXIA [None]
  - RESPIRATORY DISTRESS [None]
  - TREMOR [None]
  - WHEEZING [None]
